FAERS Safety Report 9791820 (Version 2)
Quarter: 2014Q1

REPORT INFORMATION
  Report Type: Spontaneous
  Country: JP (occurrence: JP)
  Receive Date: 20140102
  Receipt Date: 20140116
  Transmission Date: 20141002
  Serious: Yes (Hospitalization)
  Sender: FDA-Public Use
  Company Number: JP-CELGENEUS-087-21660-13125077

PATIENT
  Age: 60 Year
  Sex: Male
  Weight: 50 kg

DRUGS (14)
  1. ABRAXANE [Suspect]
     Indication: SQUAMOUS CELL CARCINOMA OF LUNG
     Dosage: 145 MILLIGRAM
     Route: 041
     Dates: start: 20131121, end: 20131128
  2. ABRAXANE [Suspect]
     Dosage: 100 MILLIGRAM/SQ. METER
     Route: 041
     Dates: start: 20131213
  3. CARBOPLATIN [Concomitant]
     Indication: SQUAMOUS CELL CARCINOMA OF LUNG
     Dosage: 280 MILLIGRAM
     Route: 041
     Dates: start: 20131121, end: 20131121
  4. CARBOPLATIN [Concomitant]
     Dosage: 280 MILLIGRAM
     Route: 041
     Dates: start: 20131213
  5. LUPRAC [Concomitant]
     Indication: OEDEMA
     Dosage: 4 MILLIGRAM
     Route: 048
  6. MIYA BM [Concomitant]
     Indication: PROPHYLAXIS AGAINST DIARRHOEA
     Dosage: 3 GRAM
     Route: 048
  7. NEXIUM [Concomitant]
     Indication: PROPHYLAXIS AGAINST GASTROINTESTINAL ULCER
     Dosage: 20 MILLIGRAM
     Route: 048
  8. DAIPHEN [Concomitant]
     Indication: ANTIFUNGAL PROPHYLAXIS
     Dosage: 1 TABLET
     Route: 048
  9. PREDONINE [Concomitant]
     Indication: RADIATION PNEUMONITIS
     Dosage: 5 MILLIGRAM
     Route: 048
  10. SENNOSIDE [Concomitant]
     Indication: CONSTIPATION
     Dosage: 24 MILLIGRAM
     Route: 048
  11. HALCION [Concomitant]
     Indication: PRODUCT USED FOR UNKNOWN INDICATION
     Dosage: .25 MILLIGRAM
     Route: 048
  12. REFLEX (MIRTAZAPINE) [Concomitant]
     Indication: PRODUCT USED FOR UNKNOWN INDICATION
     Dosage: 15 MILLIGRAM
     Route: 048
  13. MAGMITT [Concomitant]
     Indication: PRODUCT USED FOR UNKNOWN INDICATION
     Dosage: 2 TABLET
     Route: 048
  14. VALTREX [Concomitant]
     Indication: PRODUCT USED FOR UNKNOWN INDICATION
     Dosage: 500 MILLIGRAM
     Route: 048

REACTIONS (1)
  - Arrhythmia supraventricular [Recovered/Resolved]
